FAERS Safety Report 7527544-8 (Version None)
Quarter: 2011Q2

REPORT INFORMATION
  Report Type: 
  Country: None (occurrence: None)
  Receive Date: 20110607
  Receipt Date: 20110601
  Transmission Date: 20111010
  Serious: No
  Sender: FDA-Public Use
  Company Number: US-PFIZER INC-2011119346

PATIENT
  Sex: Male
  Weight: 88 kg

DRUGS (6)
  1. SINGULAIR [Concomitant]
     Dosage: UNK
  2. XYZAL [Concomitant]
     Dosage: UNK
  3. PREVACID [Concomitant]
     Dosage: UNK
  4. VALTREX [Concomitant]
     Dosage: UNK
  5. ARTHROTEC [Suspect]
     Indication: ARTHRALGIA
     Dosage: 75/200 MG, 2X/DAY
     Route: 048
     Dates: start: 20110502, end: 20110530
  6. LIPITOR [Concomitant]
     Dosage: UNK

REACTIONS (5)
  - DYSPEPSIA [None]
  - ABDOMINAL DISTENSION [None]
  - SENSATION OF PRESSURE [None]
  - SENSITIVITY OF TEETH [None]
  - DRUG INEFFECTIVE [None]
